FAERS Safety Report 17205013 (Version 3)
Quarter: 2020Q1

REPORT INFORMATION
  Report Type: Spontaneous
  Country: US (occurrence: US)
  Receive Date: 20191227
  Receipt Date: 20200205
  Transmission Date: 20200409
  Serious: No
  Sender: FDA-Public Use
  Company Number: US-UNITED THERAPEUTICS-UNT-2019-021274

PATIENT
  Age: 55 Year
  Sex: Male
  Weight: 72.56 kg

DRUGS (7)
  1. LETAIRIS [Concomitant]
     Active Substance: AMBRISENTAN
     Indication: PULMONARY ARTERIAL HYPERTENSION
     Dosage: UNK
     Route: 048
     Dates: start: 2018
  2. ORENITRAM [Suspect]
     Active Substance: TREPROSTINIL
     Dosage: 1.75 MG, TID
     Route: 048
  3. ADCIRCA [Concomitant]
     Active Substance: TADALAFIL
     Indication: PULMONARY ARTERIAL HYPERTENSION
     Dosage: UNK
     Route: 048
     Dates: start: 2018
  4. ORENITRAM [Suspect]
     Active Substance: TREPROSTINIL
     Indication: PULMONARY ARTERIAL HYPERTENSION
     Dosage: 0.375 MG, TID (7AM-3PM-11PM)
     Route: 048
     Dates: start: 20191214
  5. ORENITRAM [Suspect]
     Active Substance: TREPROSTINIL
     Dosage: 0.125 MG, TID
     Route: 048
  6. LASIX [Concomitant]
     Active Substance: FUROSEMIDE
     Indication: PULMONARY ARTERIAL HYPERTENSION
     Dosage: 20 MG, BID
     Route: 048
     Dates: start: 2018
  7. ORENITRAM [Suspect]
     Active Substance: TREPROSTINIL
     Dosage: 1.25 MG, TID
     Route: 048

REACTIONS (9)
  - Diarrhoea [Recovering/Resolving]
  - Head discomfort [Not Recovered/Not Resolved]
  - Pruritus [Recovered/Resolved]
  - Palpitations [Not Recovered/Not Resolved]
  - Dyspnoea [Not Recovered/Not Resolved]
  - Product use issue [Unknown]
  - Nasal congestion [Unknown]
  - Paraesthesia [Recovered/Resolved]
  - Headache [Unknown]

NARRATIVE: CASE EVENT DATE: 201912
